FAERS Safety Report 14913543 (Version 2)
Quarter: 2018Q2

REPORT INFORMATION
  Report Type: Spontaneous
  Country: US (occurrence: US)
  Receive Date: 20180518
  Receipt Date: 20180605
  Transmission Date: 20180711
  Serious: No
  Sender: FDA-Public Use
  Company Number: US-ASTRAZENECA-2018SE62292

PATIENT
  Age: 55 Year
  Sex: Male
  Weight: 78.9 kg

DRUGS (4)
  1. PROAIR HFA [Concomitant]
     Active Substance: ALBUTEROL SULFATE
  2. PULMICORT FLEXHALER [Suspect]
     Active Substance: BUDESONIDE
     Indication: ASTHMA
     Route: 055
     Dates: start: 2011
  3. RHINOCORT AQUA [Suspect]
     Active Substance: BUDESONIDE
     Indication: RHINITIS ALLERGIC
     Route: 045
  4. RHINOCORT AQUA [Suspect]
     Active Substance: BUDESONIDE
     Indication: RHINORRHOEA
     Route: 045

REACTIONS (5)
  - Intentional device misuse [Not Recovered/Not Resolved]
  - Cataract [Not Recovered/Not Resolved]
  - Device defective [Unknown]
  - Off label use [Unknown]
  - Product use in unapproved indication [Unknown]

NARRATIVE: CASE EVENT DATE: 2016
